FAERS Safety Report 8357325-7 (Version None)
Quarter: 2012Q2

REPORT INFORMATION
  Report Type: 
  Country: None (occurrence: None)
  Receive Date: 20120514
  Receipt Date: 20120510
  Transmission Date: 20120825
  Serious: Yes (Other)
  Sender: FDA-Public Use
  Company Number: FR-ROCHE-1068228

PATIENT
  Sex: Female

DRUGS (5)
  1. TAXOTERE [Concomitant]
  2. PACLITAXEL [Concomitant]
  3. EPIRUBICIN [Concomitant]
  4. CYCLOPHOSPHAMIDE [Concomitant]
  5. AVASTIN [Suspect]
     Indication: BREAST CANCER
     Dates: start: 20120101

REACTIONS (1)
  - CARDIAC FAILURE [None]
